FAERS Safety Report 24080514 (Version 2)
Quarter: 2024Q4

REPORT INFORMATION
  Report Type: Spontaneous
  Country: FR (occurrence: FR)
  Receive Date: 20240711
  Receipt Date: 20241030
  Transmission Date: 20250114
  Serious: Yes (Other)
  Sender: MERCK KGAA
  Company Number: FR-Merck Healthcare KGaA-2024033284

PATIENT
  Age: 33 Year
  Sex: Female

DRUGS (4)
  1. LEVOTHYROXINE [Suspect]
     Active Substance: LEVOTHYROXINE
     Indication: Endocrine ophthalmopathy
  2. LEVOTHYROXINE [Suspect]
     Active Substance: LEVOTHYROXINE
     Indication: Graves^ disease
  3. PROGESTERONE [Suspect]
     Active Substance: PROGESTERONE
     Indication: Product used for unknown indication
  4. CORTISONE [Suspect]
     Active Substance: CORTISONE
     Indication: Endocrine ophthalmopathy

REACTIONS (18)
  - Hyperthyroidism [Unknown]
  - Vision blurred [Not Recovered/Not Resolved]
  - Dizziness [Unknown]
  - Asthenia [Unknown]
  - Eye injury [Unknown]
  - Eating disorder [Unknown]
  - Hormone level abnormal [Unknown]
  - Anti-thyroid antibody increased [Recovering/Resolving]
  - Mental fatigue [Unknown]
  - Depressed mood [Unknown]
  - Fatigue [Unknown]
  - Anxiety [Unknown]
  - Nervousness [Unknown]
  - Emotional disorder [Unknown]
  - Insomnia [Unknown]
  - Scar [Unknown]
  - Post procedural discomfort [Unknown]
  - Post procedural complication [Unknown]
